FAERS Safety Report 4549521-1 (Version None)
Quarter: 2005Q1

REPORT INFORMATION
  Report Type: 
  Country: None (occurrence: None)
  Receive Date: 20050106
  Receipt Date: 20041221
  Transmission Date: 20050727
  Serious: Yes (Hospitalization)
  Sender: FDA-Public Use
  Company Number: EWC041242014

PATIENT
  Age: 30 Year
  Sex: Male
  Weight: 60 kg

DRUGS (2)
  1. ZYPREXA [Suspect]
     Indication: SCHIZOPHRENIA
     Dosage: 25 MG DAY
     Dates: start: 20021201, end: 20041120
  2. MIRTAZAPINE [Concomitant]

REACTIONS (7)
  - DISEASE RECURRENCE [None]
  - DRUG WITHDRAWAL CONVULSIONS [None]
  - ELECTROCARDIOGRAM QT CORRECTED INTERVAL PROLONGED [None]
  - ELECTROCARDIOGRAM ST SEGMENT ELEVATION [None]
  - GRAND MAL CONVULSION [None]
  - MENTAL DISORDER [None]
  - SUICIDE ATTEMPT [None]
